FAERS Safety Report 8389721-6 (Version None)
Quarter: 2012Q1

REPORT INFORMATION
  Report Type: 
  Country: None (occurrence: None)
  Receive Date: 20120323
  Receipt Date: 20110411
  Transmission Date: 20120608
  Serious: Yes (Other)
  Sender: FDA-Public Use
  Company Number: 163-21880-11032290

PATIENT
  Sex: Male

DRUGS (4)
  1. REVLIMID [Suspect]
     Indication: MULTIPLE MYELOMA
     Dosage: 5 MG, DAILY X 21 DAYS, PO 5 MG, QD X 3 WEEKS/ 1 WEEK OFF, PO
     Route: 048
     Dates: start: 20101020
  2. REVLIMID [Suspect]
     Indication: MULTIPLE MYELOMA
     Dosage: 5 MG, DAILY X 21 DAYS, PO 5 MG, QD X 3 WEEKS/ 1 WEEK OFF, PO
     Route: 048
     Dates: start: 20101222
  3. VELCADE [Concomitant]
  4. TEGRETOL [Concomitant]

REACTIONS (1)
  - DIARRHOEA [None]
